FAERS Safety Report 18320968 (Version 1)
Quarter: 2020Q3

REPORT INFORMATION
  Report Type: Spontaneous
  Country: DE (occurrence: DE)
  Receive Date: 20200929
  Receipt Date: 20200929
  Transmission Date: 20201103
  Serious: Yes (Hospitalization)
  Sender: FDA-Public Use
  Company Number: DE-TEVA-2020-DE-1831503

PATIENT
  Age: 60 Year
  Sex: Female
  Weight: 150 kg

DRUGS (2)
  1. CARBOPLATIN. [Suspect]
     Active Substance: CARBOPLATIN
     Dosage: NK
  2. PACLITAXEL. [Suspect]
     Active Substance: PACLITAXEL
     Dosage: NK

REACTIONS (7)
  - Balance disorder [Recovering/Resolving]
  - Fall [Recovering/Resolving]
  - Muscular weakness [Recovering/Resolving]
  - Musculoskeletal pain [Recovering/Resolving]
  - Paraesthesia [Recovering/Resolving]
  - General physical health deterioration [Recovering/Resolving]
  - Ligament sprain [Recovering/Resolving]
